FAERS Safety Report 4999907-6 (Version None)
Quarter: 2006Q2

REPORT INFORMATION
  Report Type: 
  Country: None (occurrence: None)
  Receive Date: 20060509
  Receipt Date: 20060419
  Transmission Date: 20061013
  Serious: Yes (Other)
  Sender: FDA-Public Use
  Company Number: ES200604000859

PATIENT
  Sex: Female

DRUGS (10)
  1. CYMBALTA [Suspect]
     Indication: DEPRESSION
     Dosage: 60 MG, ,120 MG, 60 MG,
     Dates: start: 20060302, end: 20060316
  2. CYMBALTA [Suspect]
     Indication: DEPRESSION
     Dosage: 60 MG, ,120 MG, 60 MG,
     Dates: start: 20060316, end: 20060327
  3. CYMBALTA [Suspect]
     Indication: DEPRESSION
     Dosage: 60 MG, ,120 MG, 60 MG,
     Dates: start: 20060327
  4. VENLAFAXINE HCL [Concomitant]
  5. TRAZODONE HCL [Concomitant]
  6. LUDIOMIL/SCH/(MAPROTILINE HYDROCHLORIDE) [Concomitant]
  7. DIAZEPAM [Concomitant]
  8. LEVOTHROID [Concomitant]
  9. PLATELET AGGREGATION INHIBITORS [Concomitant]
  10. ZYPREXA [Suspect]

REACTIONS (3)
  - DRUG INTERACTION [None]
  - GRANULOCYTOSIS [None]
  - WHITE BLOOD CELLS URINE POSITIVE [None]
